FAERS Safety Report 15204291 (Version 1)
Quarter: 2018Q3

REPORT INFORMATION
  Report Type: Spontaneous
  Country: US (occurrence: US)
  Receive Date: 20180726
  Receipt Date: 20180726
  Transmission Date: 20181010
  Serious: No
  Sender: FDA-Public Use
  Company Number: US-BAUSCH-BL-2018-014076

PATIENT
  Sex: Female

DRUGS (2)
  1. XENAZINE [Suspect]
     Active Substance: TETRABENAZINE
     Indication: HUNTINGTON^S DISEASE
     Route: 048
     Dates: start: 201403
  2. XENAZINE [Suspect]
     Active Substance: TETRABENAZINE
     Route: 065

REACTIONS (2)
  - Drug dose omission [Recovered/Resolved]
  - Adverse event [Unknown]
